FAERS Safety Report 26135888 (Version 1)
Quarter: 2025Q4

REPORT INFORMATION
  Report Type: Spontaneous
  Country: EU (occurrence: EU)
  Receive Date: 20251209
  Receipt Date: 20251209
  Transmission Date: 20260117
  Serious: Yes (Other)
  Sender: PFIZER
  Company Number: EU-AMGEN-SVKSP2025230970

PATIENT
  Sex: Female

DRUGS (1)
  1. BEVACIZUMAB [Suspect]
     Active Substance: BEVACIZUMAB
     Indication: Neovascular age-related macular degeneration
     Dosage: 34 INTRAVITREAL INJECTIONS LEFT EYE
     Route: 031

REACTIONS (6)
  - Visual acuity reduced [Unknown]
  - Photophobia [Unknown]
  - Vitreous haemorrhage [Unknown]
  - Retinal haemorrhage [Unknown]
  - Retinal depigmentation [Unknown]
  - Off label use [Unknown]
